FAERS Safety Report 14658863 (Version 6)
Quarter: 2018Q3

REPORT INFORMATION
  Report Type: Spontaneous
  Country: US (occurrence: US)
  Receive Date: 20180320
  Receipt Date: 20180713
  Transmission Date: 20181010
  Serious: No
  Sender: FDA-Public Use
  Company Number: US-PFIZER INC-2018065811

PATIENT
  Age: 73 Year
  Sex: Female
  Weight: 34 kg

DRUGS (11)
  1. SUTENT [Suspect]
     Active Substance: SUNITINIB MALATE
     Dosage: 37.5 MG, DAILY
     Dates: start: 20180301
  2. CLARITIN [Concomitant]
     Active Substance: LORATADINE
     Dosage: UNK, AS NEEDED
  3. SUTENT [Suspect]
     Active Substance: SUNITINIB MALATE
     Indication: PANCREATIC NEUROENDOCRINE TUMOUR METASTATIC
     Dosage: 25 MG, DAILY
     Dates: start: 20180301
  4. ALDACTONE [Concomitant]
     Active Substance: SPIRONOLACTONE
     Dosage: UNK
  5. ALLEVESS [Concomitant]
     Active Substance: CAPSAICIN\MENTHOL
     Dosage: UNK, AS NEEDED
  6. TELOTRISTAT ETHYL [Concomitant]
     Active Substance: TELOTRISTAT ETHYL
     Indication: DIARRHOEA
     Dosage: UNK
  7. OXYCODONE [Concomitant]
     Active Substance: OXYCODONE
     Dosage: 5 MG, UNK
  8. SPIRONOLACTONE. [Concomitant]
     Active Substance: SPIRONOLACTONE
     Dosage: UNK
  9. SANDOSTATIN [Concomitant]
     Active Substance: OCTREOTIDE ACETATE
     Dosage: UNK, MONTHLY
  10. FERROUS SULFATE. [Concomitant]
     Active Substance: FERROUS SULFATE
     Dosage: UNK
  11. METOPROLOL. [Concomitant]
     Active Substance: METOPROLOL
     Dosage: UNK

REACTIONS (7)
  - Abdominal distension [Unknown]
  - Dysgeusia [Not Recovered/Not Resolved]
  - Blood pressure increased [Recovering/Resolving]
  - Flatulence [Recovering/Resolving]
  - Neoplasm progression [Unknown]
  - Weight decreased [Unknown]
  - Feeling cold [Unknown]

NARRATIVE: CASE EVENT DATE: 2018
